FAERS Safety Report 14645594 (Version 2)
Quarter: 2018Q2

REPORT INFORMATION
  Report Type: Spontaneous
  Country: JP (occurrence: JP)
  Receive Date: 20180316
  Receipt Date: 20180425
  Transmission Date: 20180711
  Serious: Yes (Death, Hospitalization, Other)
  Sender: FDA-Public Use
  Company Number: JP-009507513-1711JPN000729J

PATIENT
  Age: 77 Year
  Sex: Female
  Weight: 44 kg

DRUGS (15)
  1. ANTEBATE:OINTMENT [Concomitant]
     Dosage: UNK UNK, BID
     Route: 003
     Dates: start: 20171005, end: 20171005
  2. SEISHOKU [Concomitant]
     Active Substance: SODIUM CHLORIDE
     Dosage: UNK
     Route: 041
     Dates: start: 20171005, end: 20171005
  3. FAMOTIDINE. [Concomitant]
     Active Substance: FAMOTIDINE
     Dosage: UNK UNK, BID
     Route: 048
     Dates: start: 20171006, end: 20171207
  4. ALLEGRA [Concomitant]
     Active Substance: FEXOFENADINE HYDROCHLORIDE
     Dosage: UNK UNK, BID
     Route: 048
     Dates: start: 20171005, end: 20171014
  5. ALLEGRA [Concomitant]
     Active Substance: FEXOFENADINE HYDROCHLORIDE
     Dosage: UNK UNK, BID
     Route: 048
     Dates: start: 20171018, end: 20171123
  6. ANTEBATE:OINTMENT [Concomitant]
     Dosage: UNK UNK, BID
     Route: 003
     Dates: start: 20171010, end: 20171010
  7. SEISHOKU [Concomitant]
     Active Substance: SODIUM CHLORIDE
     Dosage: UNK
     Route: 041
     Dates: start: 20171117, end: 20171203
  8. LOXOPROFEN [Concomitant]
     Active Substance: LOXOPROFEN
     Dosage: UNK UNK, TID
     Route: 048
     Dates: start: 20171006, end: 20171207
  9. KEYTRUDA [Suspect]
     Active Substance: PEMBROLIZUMAB
     Indication: LUNG ADENOCARCINOMA
     Dosage: 200 MG, Q3W
     Route: 041
     Dates: start: 20171005, end: 20171026
  10. SEISHOKU [Concomitant]
     Active Substance: SODIUM CHLORIDE
     Dosage: UNK
     Route: 041
     Dates: start: 20180108, end: 20180111
  11. PANVITAN [Concomitant]
     Dosage: UNK UNK, QD
     Route: 048
     Dates: start: 20171001, end: 20171207
  12. TRAMCET [Concomitant]
     Active Substance: ACETAMINOPHEN\TRAMADOL
     Dosage: UNK UNK, PRN
     Route: 048
     Dates: start: 20171006, end: 20171011
  13. TRAMCET [Concomitant]
     Active Substance: ACETAMINOPHEN\TRAMADOL
     Dosage: UNK UNK, PRN
     Route: 048
     Dates: start: 20171114, end: 20171118
  14. SEISHOKU [Concomitant]
     Active Substance: SODIUM CHLORIDE
     Dosage: UNK
     Route: 041
     Dates: start: 20171111, end: 20171114
  15. SEISHOKU [Concomitant]
     Active Substance: SODIUM CHLORIDE
     Dosage: UNK
     Route: 041
     Dates: start: 20171026, end: 20171026

REACTIONS (4)
  - Pneumonitis [Recovering/Resolving]
  - Pneumonia [Fatal]
  - Malignant neoplasm progression [Unknown]
  - Rash maculo-papular [Recovering/Resolving]

NARRATIVE: CASE EVENT DATE: 20171008
